FAERS Safety Report 15610443 (Version 1)
Quarter: 2018Q4

REPORT INFORMATION
  Report Type: Spontaneous
  Country: US (occurrence: US)
  Receive Date: 20181113
  Receipt Date: 20181113
  Transmission Date: 20190205
  Serious: No
  Sender: FDA-Public Use
  Company Number: US-ASTRAZENECA-2018SF46161

PATIENT
  Sex: Female
  Weight: 81.6 kg

DRUGS (2)
  1. TEMAZEPAM. [Concomitant]
     Active Substance: TEMAZEPAM
     Indication: SLEEP DISORDER
  2. SEROQUEL [Suspect]
     Active Substance: QUETIAPINE FUMARATE
     Indication: SLEEP DISORDER
     Route: 048
     Dates: start: 201610, end: 201710

REACTIONS (6)
  - Weight increased [Unknown]
  - Blood glucose abnormal [Unknown]
  - Fluid retention [Unknown]
  - Product use in unapproved indication [Unknown]
  - Metabolic disorder [Unknown]
  - Off label use [Unknown]
